FAERS Safety Report 13464741 (Version 1)
Quarter: 2017Q2

REPORT INFORMATION
  Report Type: Report from Study
  Country: GB (occurrence: GB)
  Receive Date: 20170420
  Receipt Date: 20170420
  Transmission Date: 20170830
  Serious: Yes (Other)
  Sender: FDA-Public Use
  Company Number: GB-ALLERGAN-1714670US

PATIENT
  Age: 43 Year
  Sex: Female

DRUGS (1)
  1. ACAMPROSATE CALCIUM UNK [Suspect]
     Active Substance: ACAMPROSATE CALCIUM
     Indication: ALCOHOLISM
     Dosage: 333 MG, UNK

REACTIONS (3)
  - Pregnancy [Recovered/Resolved]
  - Abortion spontaneous [Unknown]
  - Exposure during pregnancy [Unknown]

NARRATIVE: CASE EVENT DATE: 201703
